FAERS Safety Report 8060892 (Version 2)
Quarter: 2013Q1

REPORT INFORMATION
  Report Type: Spontaneous
  Country: FR (occurrence: None)
  Receive Date: 20110719
  Receipt Date: 20130326
  Transmission Date: 20140127
  Serious: Yes (Hospitalization)
  Sender: FDA-Public Use
  Company Number: 2010CP000099

PATIENT
  Age: 28 Year
  Sex: Female

DRUGS (4)
  1. PERFALGAN [Suspect]
     Route: 042
     Dates: start: 20091126
  2. ACETAMINOPHEN [Suspect]
     Route: 048
     Dates: start: 20091126
  3. AMOXICILLIN TRIHYDRATE [Suspect]
     Dosage: PO
     Route: 048
     Dates: start: 20091226, end: 20091226
  4. SYNTOCINON [Suspect]
     Route: 042
     Dates: start: 20091226

REACTIONS (12)
  - DERMATITIS EXFOLIATIVE [None]
  - LYMPHADENOPATHY [None]
  - EOSINOPHILIA [None]
  - HYPERCREATININAEMIA [None]
  - PYREXIA [None]
  - EYELID OEDEMA [None]
  - FACE OEDEMA [None]
  - MATERNAL EXPOSURE DURING PREGNANCY [None]
  - HYPERTHERMIA [None]
  - RASH MACULO-PAPULAR [None]
  - DRUG HYPERSENSITIVITY [None]
  - Rash vesicular [None]
